FAERS Safety Report 22206598 (Version 1)
Quarter: 2023Q2

REPORT INFORMATION
  Report Type: Spontaneous
  Country: JP (occurrence: JP)
  Receive Date: 20230413
  Receipt Date: 20230413
  Transmission Date: 20230721
  Serious: Yes (Hospitalization)
  Sender: FDA-Public Use
  Company Number: JP-SUN PHARMACEUTICAL INDUSTRIES LTD-2023RR-384301

PATIENT
  Age: 7 Decade
  Sex: Female

DRUGS (3)
  1. ESCITALOPRAM [Suspect]
     Active Substance: ESCITALOPRAM OXALATE
     Indication: Depression
     Dosage: 20 MILLIGRAM, DAILY
     Route: 065
  2. TRAZODONE HYDROCHLORIDE [Suspect]
     Active Substance: TRAZODONE HYDROCHLORIDE
     Indication: Depression
     Dosage: 75 MILLIGRAM, DAILY
     Route: 065
  3. CELECOXIB [Interacting]
     Active Substance: CELECOXIB
     Indication: Pain
     Dosage: 200 MILLIGRAM, DAILY
     Route: 065

REACTIONS (14)
  - Drug interaction [Unknown]
  - Restlessness [Unknown]
  - Depressed mood [Unknown]
  - Suicidal ideation [Unknown]
  - Hypomania [Unknown]
  - Hyperventilation [Unknown]
  - Anxiety [Unknown]
  - Dyspnoea [Unknown]
  - Insomnia [Unknown]
  - Chills [Unknown]
  - Euphoric mood [Unknown]
  - Psychomotor hyperactivity [Unknown]
  - Aggression [Unknown]
  - Logorrhoea [Unknown]
